FAERS Safety Report 6761154-5 (Version None)
Quarter: 2010Q2

REPORT INFORMATION
  Report Type: 
  Country: None (occurrence: None)
  Receive Date: 20100608
  Receipt Date: 20100601
  Transmission Date: 20101027
  Serious: Yes (Other)
  Sender: FDA-Public Use
  Company Number: FR-ELI_LILLY_AND_COMPANY-FR201006000024

PATIENT
  Sex: Male
  Weight: 93 kg

DRUGS (6)
  1. EFFIENT [Suspect]
     Dosage: UNK, UNKNOWN
     Route: 048
     Dates: start: 20100405
  2. CEFOTAXIME [Concomitant]
     Dosage: 2 G, 3/D
     Route: 065
     Dates: start: 20100409, end: 20100417
  3. CEFOTAXIME [Concomitant]
     Dosage: 2 G, 3/D
     Route: 042
     Dates: start: 20100421, end: 20100424
  4. TAZOCILLINE [Concomitant]
     Dosage: UNK, UNKNOWN
     Route: 065
  5. IMIPENEM AND CILASTATIN [Concomitant]
     Dosage: UNK, UNKNOWN
     Route: 065
  6. REOPRO [Concomitant]
     Dosage: UNK, UNKNOWN
     Route: 065

REACTIONS (5)
  - DISEASE COMPLICATION [None]
  - DRUG RASH WITH EOSINOPHILIA AND SYSTEMIC SYMPTOMS [None]
  - PNEUMONIA ASPIRATION [None]
  - SEPTIC SHOCK [None]
  - TRANSAMINASES INCREASED [None]
